FAERS Safety Report 5778872-8 (Version None)
Quarter: 2008Q2

REPORT INFORMATION
  Report Type: 
  Country: None (occurrence: None)
  Receive Date: 20080619
  Receipt Date: 20080520
  Transmission Date: 20081010
  Serious: No
  Sender: FDA-Public Use
  Company Number: US-JNJFOC-20080504352

PATIENT
  Sex: Female

DRUGS (3)
  1. INVEGA [Suspect]
     Indication: DRUG USE FOR UNKNOWN INDICATION
     Route: 048
  2. ZOLOFT [Concomitant]
     Dosage: ^LOWERED DOSE^
     Route: 048
  3. ZOLOFT [Concomitant]
     Route: 048

REACTIONS (2)
  - HEADACHE [None]
  - HYPONATRAEMIA [None]
